FAERS Safety Report 24117968 (Version 2)
Quarter: 2024Q3

REPORT INFORMATION
  Report Type: Spontaneous
  Country: ES (occurrence: ES)
  Receive Date: 20240722
  Receipt Date: 20240723
  Transmission Date: 20241017
  Serious: Yes (Hospitalization)
  Sender: BOEHRINGER INGELHEIM
  Company Number: None

PATIENT
  Age: 72 Year
  Sex: Female

DRUGS (12)
  1. OFEV [Suspect]
     Active Substance: NINTEDANIB
     Indication: Idiopathic pulmonary fibrosis
     Route: 048
     Dates: start: 20240408, end: 20240709
  2. METAMIZOLE MAGNESIUM [Concomitant]
     Active Substance: METAMIZOLE MAGNESIUM
     Indication: Product used for unknown indication
     Route: 048
     Dates: start: 20180528
  3. VENTOLIN 100 microgramos/INHALACI?N SUSPENSI?N PARA INHALACI?N [Concomitant]
     Indication: Product used for unknown indication
     Route: 055
     Dates: start: 20220427
  4. CELECOXIB NORMON 200 MG CAPSULAS DURAS EFG , 30 c?psulas [Concomitant]
     Indication: Product used for unknown indication
     Route: 048
     Dates: start: 20230417
  5. VALSARTAN/HIDROCLOROTIAZIDA KERN PHARMA 80 mg/12,5 mg COMPRIMIDOS [Concomitant]
     Indication: Product used for unknown indication
     Route: 048
     Dates: start: 20240618
  6. PREDNISONA CINFA 2,5 mg COMPRIMIDOS EFG, 30 comprimidos [Concomitant]
     Indication: Product used for unknown indication
     Route: 048
     Dates: start: 20240313
  7. ESOMEPRAZOL CINFA 20 mg COMPRIMIDOS GASTRORRESISTENTES EFG [Concomitant]
     Indication: Product used for unknown indication
     Route: 048
     Dates: start: 20231023
  8. FOSTER NEXTHALER 100 MICROGRAMOS/6 MICROGRAMOS/INHALACION POLVO PARA [Concomitant]
     Indication: Product used for unknown indication
     Route: 055
     Dates: start: 20220613
  9. ESCITALOPRAM NORMON 10 mg COMPRIMIDOS RECUBIERTOS CON PELICULA EFG, [Concomitant]
     Indication: Product used for unknown indication
     Route: 048
     Dates: start: 20240111
  10. LORMETAZEPAM NORMON 1 mg COMPRIMIDOS EFG, 30 comprimidos [Concomitant]
     Indication: Product used for unknown indication
     Route: 048
     Dates: start: 20240111
  11. SIMVASTATINA NORMON 10 mg COMPRIMIDOS RECUBIERTOS CON  PELICULA EFG [Concomitant]
     Indication: Product used for unknown indication
     Route: 048
     Dates: start: 20190111
  12. PARACETAMOL KERN PHARMA 1 g COMPRIMIDOS EFG, 40 comprimidos [Concomitant]
     Indication: Product used for unknown indication
     Route: 048
     Dates: start: 20220928

REACTIONS (1)
  - Transient ischaemic attack [Recovered/Resolved]

NARRATIVE: CASE EVENT DATE: 20240709
